FAERS Safety Report 14986662 (Version 1)
Quarter: 2018Q2

REPORT INFORMATION
  Report Type: Report from Study
  Country: IT (occurrence: IT)
  Receive Date: 20180608
  Receipt Date: 20180608
  Transmission Date: 20180711
  Serious: Yes (Other)
  Sender: FDA-Public Use
  Company Number: IT-ROCHE-2131850

PATIENT

DRUGS (9)
  1. PANITUMUMAB [Suspect]
     Active Substance: PANITUMUMAB
     Indication: COLORECTAL CANCER METASTATIC
     Route: 065
  2. LEUCOVORIN. [Suspect]
     Active Substance: LEUCOVORIN
     Indication: COLORECTAL CANCER METASTATIC
     Route: 065
  3. CETUXIMAB. [Suspect]
     Active Substance: CETUXIMAB
     Indication: COLORECTAL CANCER METASTATIC
     Route: 065
  4. BEVACIZUMAB. [Suspect]
     Active Substance: BEVACIZUMAB
     Indication: COLORECTAL CANCER METASTATIC
     Route: 065
  5. AFLIBERCEPT [Suspect]
     Active Substance: AFLIBERCEPT
     Indication: COLORECTAL CANCER METASTATIC
     Route: 065
  6. IRINOTECAN [Suspect]
     Active Substance: IRINOTECAN
     Indication: COLORECTAL CANCER METASTATIC
     Route: 065
  7. OXALIPLATIN. [Suspect]
     Active Substance: OXALIPLATIN
     Indication: COLORECTAL CANCER METASTATIC
     Route: 065
  8. FLUOROURACIL. [Suspect]
     Active Substance: FLUOROURACIL
     Indication: COLORECTAL CANCER METASTATIC
     Route: 065
  9. CAPECITABINE. [Suspect]
     Active Substance: CAPECITABINE
     Indication: COLORECTAL CANCER METASTATIC
     Route: 065

REACTIONS (22)
  - Gastrointestinal disorder [Unknown]
  - Renal disorder [Unknown]
  - Mediastinal disorder [Unknown]
  - Connective tissue disorder [Unknown]
  - Urinary tract disorder [Unknown]
  - Skin disorder [Unknown]
  - Lymphatic disorder [Unknown]
  - Injury [Unknown]
  - Musculoskeletal disorder [Unknown]
  - Angiopathy [Unknown]
  - Malnutrition [Unknown]
  - Hepatobiliary disease [Unknown]
  - Infection [Unknown]
  - Infestation [Unknown]
  - Poisoning [Unknown]
  - Metabolic disorder [Unknown]
  - Respiratory disorder [Unknown]
  - Blood disorder [Unknown]
  - Cardiac disorder [Unknown]
  - Nervous system disorder [Unknown]
  - Unevaluable event [Unknown]
  - Ill-defined disorder [Unknown]
